FAERS Safety Report 6755571-7 (Version None)
Quarter: 2010Q2

REPORT INFORMATION
  Report Type: 
  Country: None (occurrence: None)
  Receive Date: 20100602
  Receipt Date: 20100519
  Transmission Date: 20101027
  Serious: Yes (Hospitalization)
  Sender: FDA-Public Use
  Company Number: 009303

PATIENT
  Age: 93 Year
  Sex: Female

DRUGS (6)
  1. PLETAL [Suspect]
     Dosage: 100 MG, BID ORAL
     Route: 048
     Dates: start: 20100415, end: 20100419
  2. CEFDINIR [Suspect]
     Indication: CARDIAC PACEMAKER INSERTION
     Dosage: 100 MG, BID ORAL
     Route: 048
     Dates: start: 20100415, end: 20100417
  3. CEFAZOLIN SODIUM (CEFAZOLIN SODIUM) INJECTION [Concomitant]
  4. ARICEPT D (DONEPEZIL HYDROCHLORIDE) TABLET [Concomitant]
  5. LASIX [Concomitant]
  6. BLOPRESS (CANDESARTAN CILEXETIL) TABLET [Concomitant]

REACTIONS (3)
  - ANAEMIA [None]
  - PLEURAL EFFUSION [None]
  - RENAL FAILURE ACUTE [None]
